FAERS Safety Report 19149484 (Version 1)
Quarter: 2021Q2

REPORT INFORMATION
  Report Type: Spontaneous
  Country: US (occurrence: US)
  Receive Date: 20210416
  Receipt Date: 20210416
  Transmission Date: 20210717
  Serious: No
  Sender: FDA-Public Use
  Company Number: US-AIMMUNE THERAPEUTICS, INC.-2021AIMT00216

PATIENT

DRUGS (7)
  1. DEXMETHYLPHENIDATE [Concomitant]
     Active Substance: DEXMETHYLPHENIDATE HYDROCHLORIDE
     Dosage: 2.5 MG
  2. AUVI?Q [Concomitant]
     Active Substance: EPINEPHRINE
     Dosage: 0.3 MG
  3. MONTELUKAST [Concomitant]
     Active Substance: MONTELUKAST SODIUM
  4. ZYRTEC [Concomitant]
     Active Substance: CETIRIZINE HYDROCHLORIDE
     Dosage: 4 MG
  5. PEPCID [Concomitant]
     Active Substance: FAMOTIDINE
     Dosage: 40 MG
  6. SYMBICORT [Concomitant]
     Active Substance: BUDESONIDE\FORMOTEROL FUMARATE DIHYDRATE
  7. PALFORZIA [Suspect]
     Active Substance: PEANUT
     Indication: FOOD ALLERGY
     Dosage: 80 UNK, 1X/DAY
     Route: 048
     Dates: start: 20210810

REACTIONS (3)
  - Intentional dose omission [None]
  - Somatic symptom disorder [None]
  - Abdominal discomfort [None]

NARRATIVE: CASE EVENT DATE: 202104
